FAERS Safety Report 23634129 (Version 3)
Quarter: 2024Q1

REPORT INFORMATION
  Report Type: Spontaneous
  Country: US (occurrence: US)
  Receive Date: 20240314
  Receipt Date: 20240328
  Transmission Date: 20240409
  Serious: Yes (Hospitalization, Disabling, Other)
  Sender: FDA-Public Use
  Company Number: US-SUNOVION-2024SUN000188

PATIENT

DRUGS (7)
  1. APTIOM [Suspect]
     Active Substance: ESLICARBAZEPINE ACETATE
     Indication: Seizure
     Dosage: 800 MG, QD
     Route: 048
     Dates: start: 20240117
  2. APTIOM [Suspect]
     Active Substance: ESLICARBAZEPINE ACETATE
     Dosage: 600 MG, BID
     Route: 048
     Dates: start: 20240221
  3. NITROFURANTOIN [Suspect]
     Active Substance: NITROFURANTOIN
     Dosage: UNK
     Route: 065
  4. ACETAZOLAMIDE [Suspect]
     Active Substance: ACETAZOLAMIDE
     Dosage: UNK
     Route: 065
  5. LEVETIRACETAM [Concomitant]
     Active Substance: LEVETIRACETAM
     Dosage: UNK
     Route: 065
  6. BUSPIRONE [Concomitant]
     Active Substance: BUSPIRONE HYDROCHLORIDE
     Indication: Agitation
     Dosage: UNK
     Route: 065
  7. MEMANTINE [Concomitant]
     Active Substance: MEMANTINE
     Indication: Dementia
     Dosage: UNK
     Route: 065

REACTIONS (25)
  - Petit mal epilepsy [Not Recovered/Not Resolved]
  - Suicidal ideation [Not Recovered/Not Resolved]
  - Dementia [Not Recovered/Not Resolved]
  - Restlessness [Unknown]
  - Excessive eye blinking [Unknown]
  - Aggression [Unknown]
  - Seizure [Not Recovered/Not Resolved]
  - Tremor [Unknown]
  - Tic [Not Recovered/Not Resolved]
  - Muscle twitching [Not Recovered/Not Resolved]
  - Musculoskeletal stiffness [Unknown]
  - Eye movement disorder [Not Recovered/Not Resolved]
  - Agitation [Not Recovered/Not Resolved]
  - Crying [Not Recovered/Not Resolved]
  - Anger [Not Recovered/Not Resolved]
  - Screaming [Not Recovered/Not Resolved]
  - Blood pressure increased [Unknown]
  - Feeling jittery [Unknown]
  - Weight decreased [Not Recovered/Not Resolved]
  - Fall [Unknown]
  - Asthenia [Not Recovered/Not Resolved]
  - Balance disorder [Not Recovered/Not Resolved]
  - Visual impairment [Unknown]
  - Therapy interrupted [Unknown]
  - Inappropriate schedule of product administration [Unknown]

NARRATIVE: CASE EVENT DATE: 20210101
